FAERS Safety Report 14588249 (Version 2)
Quarter: 2018Q1

REPORT INFORMATION
  Report Type: Other
  Country: None (occurrence: US)
  Receive Date: 20180301
  Receipt Date: 20180323
  Transmission Date: 20180509
  Serious: Yes (Death, Hospitalization, Disabling)
  Sender: FDA-Public Use
  Company Number: US-X-GEN PHARMACEUTICALS, INC-2042825

PATIENT
  Age: 14 Year
  Sex: Female
  Weight: 49.1 kg

DRUGS (11)
  1. ONDANSETRON [Concomitant]
     Active Substance: ONDANSETRON
     Route: 065
     Dates: start: 20170913
  2. HYDROCORTISONE. [Concomitant]
     Active Substance: HYDROCORTISONE
     Route: 065
     Dates: start: 20170908
  3. BRINCIDOFOVIR [Suspect]
     Active Substance: BRINCIDOFOVIR
     Route: 048
     Dates: start: 20170901, end: 20170918
  4. AMBISOME [Suspect]
     Active Substance: AMPHOTERICIN B
     Route: 042
     Dates: start: 20170921, end: 20170925
  5. CYCLOPHOSPHAMIDE. [Suspect]
     Active Substance: CYCLOPHOSPHAMIDE
     Route: 042
     Dates: start: 20170915, end: 20170916
  6. POSACONAZOLE REGIMEN [Suspect]
     Active Substance: POSACONAZOLE
     Route: 042
     Dates: start: 20170718, end: 20171017
  7. TOBRAMYCIN. [Suspect]
     Active Substance: TOBRAMYCIN
     Indication: SEPSIS
     Route: 042
     Dates: start: 20170921, end: 20170921
  8. FOSCARNET SODIUM. [Concomitant]
     Active Substance: FOSCARNET SODIUM
     Route: 065
     Dates: start: 20170913
  9. LORAZEPAM. [Concomitant]
     Active Substance: LORAZEPAM
     Route: 065
     Dates: start: 20170914
  10. FUROSEMIDE. [Concomitant]
     Active Substance: FUROSEMIDE
     Route: 065
     Dates: start: 20170905
  11. URSODEOXYCHOLIC ACID [Concomitant]
     Active Substance: URSODIOL
     Route: 065
     Dates: start: 20170610

REACTIONS (1)
  - Acute kidney injury [None]
